FAERS Safety Report 22073663 (Version 1)
Quarter: 2023Q1

REPORT INFORMATION
  Report Type: Spontaneous
  Country: CN (occurrence: CN)
  Receive Date: 20230308
  Receipt Date: 20230308
  Transmission Date: 20230417
  Serious: Yes (Hospitalization, Other)
  Sender: FDA-Public Use
  Company Number: CN-AstraZeneca-2023A049592

PATIENT
  Age: 66 Year
  Sex: Female
  Weight: 60 kg

DRUGS (4)
  1. METOPROLOL SUCCINATE [Suspect]
     Active Substance: METOPROLOL SUCCINATE
     Indication: Coronary artery disease
     Route: 048
     Dates: start: 20200201, end: 20230220
  2. ASPIRIN [Suspect]
     Active Substance: ASPIRIN
     Indication: Coronary artery disease
     Route: 048
     Dates: start: 20200201, end: 20230220
  3. LEVAMLODIPINE BESYLATE [Suspect]
     Active Substance: LEVAMLODIPINE BESYLATE
     Indication: Coronary artery disease
     Route: 048
     Dates: start: 20200201, end: 20230220
  4. ATORVASTATIN [Suspect]
     Active Substance: ATORVASTATIN
     Indication: Coronary artery disease
     Route: 048
     Dates: start: 20200201, end: 20230220

REACTIONS (7)
  - Lower gastrointestinal haemorrhage [Recovering/Resolving]
  - Abdominal distension [Unknown]
  - Melaena [Unknown]
  - Mental disorder [Unknown]
  - Anaemia [Unknown]
  - Breath sounds abnormal [Unknown]
  - Abdominal discomfort [Recovered/Resolved]

NARRATIVE: CASE EVENT DATE: 20230201
